FAERS Safety Report 14928853 (Version 1)
Quarter: 2018Q2

REPORT INFORMATION
  Report Type: Report from Study
  Country: IT (occurrence: IT)
  Receive Date: 20180523
  Receipt Date: 20180523
  Transmission Date: 20180711
  Serious: Yes (Other)
  Sender: FDA-Public Use
  Company Number: IT-JNJFOC-20180521480

PATIENT

DRUGS (4)
  1. DOXORUBICIN HYDROCHLORIDE. [Suspect]
     Active Substance: DOXORUBICIN HYDROCHLORIDE
     Indication: OSTEOSARCOMA
     Route: 042
  2. CISPLATIN. [Suspect]
     Active Substance: CISPLATIN
     Indication: OSTEOSARCOMA
     Dosage: 48=72 HOURS
     Route: 042
  3. IFOSFAMIDE. [Suspect]
     Active Substance: IFOSFAMIDE
     Indication: OSTEOSARCOMA
     Dosage: DOSE: 3 G/M2/DAY 1- TO 2-HOUR INFUSIONS, 2 DAYS, DOSE PER CYCLE 6 G/M2
     Route: 042
  4. METHOTREXATE. [Suspect]
     Active Substance: METHOTREXATE
     Indication: OSTEOSARCOMA
     Dosage: DOSE: 8 G/M2, 4-HOUR INFUSION
     Route: 042

REACTIONS (7)
  - Off label use [Unknown]
  - Thrombocytopenia [Unknown]
  - Nephropathy toxic [Unknown]
  - Product use in unapproved indication [Unknown]
  - Neurotoxicity [Unknown]
  - Febrile neutropenia [Unknown]
  - White blood cell disorder [Unknown]
